FAERS Safety Report 7180924-5 (Version None)
Quarter: 2010Q4

REPORT INFORMATION
  Report Type: 
  Country: None (occurrence: None)
  Receive Date: 20101221
  Receipt Date: 20100410
  Transmission Date: 20110411
  Serious: No
  Sender: FDA-Public Use
  Company Number: US-AMGEN-TCS405503

PATIENT

DRUGS (2)
  1. ENBREL [Suspect]
     Indication: PSORIATIC ARTHROPATHY
     Dosage: 50 MG, QWK
     Route: 058
     Dates: start: 20100320
  2. AZATHIOPRINE [Concomitant]
     Dosage: 50 MG, UNK
     Dates: start: 20050401

REACTIONS (1)
  - INJECTION SITE PAIN [None]
